FAERS Safety Report 9360000 (Version 1)
Quarter: 2013Q2

REPORT INFORMATION
  Report Type: Spontaneous
  Country: US (occurrence: None)
  Receive Date: 20130620
  Receipt Date: 20130620
  Transmission Date: 20140414
  Serious: Yes (Death)
  Sender: FDA-Public Use
  Company Number: None

PATIENT
  Age: 17 Year
  Sex: Male

DRUGS (1)
  1. CELEXA [Suspect]
     Indication: ANXIETY
     Route: 048

REACTIONS (3)
  - Completed suicide [None]
  - Gun shot wound [None]
  - Drug administered to patient of inappropriate age [None]
